FAERS Safety Report 4388603-4 (Version None)
Quarter: 2004Q2

REPORT INFORMATION
  Report Type: 
  Country: None (occurrence: None)
  Receive Date: 20040624
  Receipt Date: 20040611
  Transmission Date: 20050107
  Serious: Yes (Disabling)
  Sender: FDA-Public Use
  Company Number: 2004039871

PATIENT
  Age: 68 Year
  Sex: Female

DRUGS (2)
  1. ATARAX [Suspect]
     Indication: ILL-DEFINED DISORDER
     Dosage: 25 MG, INTRAMUSCULAR
     Route: 030
     Dates: start: 20040517, end: 20040517
  2. PENTAZOCINE LACTATE [Suspect]
     Indication: ILL-DEFINED DISORDER
     Dosage: 15 MG, INTRAMUSCULAR
     Route: 030
     Dates: start: 20040517, end: 20040517

REACTIONS (2)
  - INJECTION SITE INDURATION [None]
  - INJECTION SITE PAIN [None]
